FAERS Safety Report 20192914 (Version 1)
Quarter: 2021Q4

REPORT INFORMATION
  Report Type: Spontaneous
  Country: US (occurrence: US)
  Receive Date: 20211216
  Receipt Date: 20211216
  Transmission Date: 20220304
  Serious: No
  Sender: FDA-Public Use
  Company Number: US-ENDO PHARMACEUTICALS INC-2021-012482

PATIENT
  Age: 67 Year
  Sex: Male

DRUGS (1)
  1. XIAFLEX [Suspect]
     Active Substance: COLLAGENASE CLOSTRIDIUM HISTOLYTICUM
     Indication: Peyronie^s disease
     Dosage: UNK UNKNOWN, UNKNOWN (CYCLE ONE, INJECTION ONE)
     Route: 065
     Dates: start: 20211015

REACTIONS (8)
  - Genital swelling [Unknown]
  - Pubic pain [Unknown]
  - Scrotal pain [Unknown]
  - Genital contusion [Unknown]
  - Scrotal swelling [Unknown]
  - Penile contusion [Unknown]
  - Penile pain [Unknown]
  - Penile swelling [Unknown]

NARRATIVE: CASE EVENT DATE: 20211001
